FAERS Safety Report 22333769 (Version 2)
Quarter: 2023Q4

REPORT INFORMATION
  Report Type: Spontaneous
  Country: US (occurrence: US)
  Receive Date: 20230517
  Receipt Date: 20231026
  Transmission Date: 20240109
  Serious: No
  Sender: FDA-Public Use
  Company Number: US-TRAVERE-2023TVT00163

PATIENT
  Age: 23 Year
  Sex: Male

DRUGS (3)
  1. FILSPARI [Suspect]
     Active Substance: SPARSENTAN
     Indication: IgA nephropathy
     Route: 048
     Dates: start: 20230512
  2. FUROSEMIDE [Concomitant]
     Active Substance: FUROSEMIDE
  3. LISINOPRIL [Concomitant]
     Active Substance: LISINOPRIL

REACTIONS (10)
  - Abdominal pain [Unknown]
  - Vomiting [Unknown]
  - Retching [Unknown]
  - Muscle spasms [Unknown]
  - Muscular weakness [Unknown]
  - Fatigue [Unknown]
  - Illness [Unknown]
  - Feeding disorder [Unknown]
  - Decreased appetite [Unknown]
  - Pain [Unknown]

NARRATIVE: CASE EVENT DATE: 20230512
